FAERS Safety Report 7460449-X (Version None)
Quarter: 2011Q2

REPORT INFORMATION
  Report Type: 
  Country: None (occurrence: None)
  Receive Date: 20110505
  Receipt Date: 20110502
  Transmission Date: 20111010
  Serious: Yes (Hospitalization)
  Sender: FDA-Public Use
  Company Number: B0717140A

PATIENT
  Age: 63 Year
  Sex: Male

DRUGS (1)
  1. ROSIGLITAZONE MALEATE [Suspect]
     Indication: DIABETES MELLITUS
     Dosage: 4MG PER DAY
     Route: 048
     Dates: start: 19990101, end: 20080808

REACTIONS (4)
  - MYOCARDIAL INFARCTION [None]
  - WEIGHT INCREASED [None]
  - CATHETERISATION CARDIAC [None]
  - LIBIDO DECREASED [None]
